FAERS Safety Report 15985659 (Version 16)
Quarter: 2020Q2

REPORT INFORMATION
  Report Type: Report from Study
  Country: BR (occurrence: BR)
  Receive Date: 20190220
  Receipt Date: 20200625
  Transmission Date: 20200713
  Serious: Yes (Life-Threatening, Other)
  Sender: FDA-Public Use
  Company Number: PHHY2019BR037181

PATIENT
  Age: 63 Year
  Sex: Female
  Weight: 55 kg

DRUGS (25)
  1. SANDOSTATIN LAR DEPOT [Suspect]
     Active Substance: OCTREOTIDE ACETATE
     Dosage: 30 MG
     Route: 065
     Dates: start: 200209
  2. SANDOSTATIN LAR DEPOT [Suspect]
     Active Substance: OCTREOTIDE ACETATE
     Dosage: 30 MG, UNK
     Route: 030
  3. DIAMICRON [Concomitant]
     Active Substance: GLICLAZIDE
     Indication: DIABETES MELLITUS
     Dosage: 30 MG, UNKNOWN (25 YRS AGO)
     Route: 048
  4. SUPRADYN [Concomitant]
     Active Substance: ASCORBIC ACID\MINERALS\VITAMINS
     Indication: PRODUCT USED FOR UNKNOWN INDICATION
     Dosage: 1 DF, QD
     Route: 048
  5. MULTAMIN [Concomitant]
     Active Substance: VITAMINS
     Indication: PRODUCT USED FOR UNKNOWN INDICATION
     Dosage: UNK
     Route: 065
  6. SANDOSTATIN LAR DEPOT [Suspect]
     Active Substance: OCTREOTIDE ACETATE
     Indication: ACROMEGALY
     Dosage: 30 MG, QMO (EVERY 28 DAYS)
     Route: 030
     Dates: start: 2002
  7. SANDOSTATIN LAR DEPOT [Suspect]
     Active Substance: OCTREOTIDE ACETATE
     Dosage: UNK
     Route: 030
     Dates: start: 20190912
  8. SANDOSTATIN LAR DEPOT [Suspect]
     Active Substance: OCTREOTIDE ACETATE
     Dosage: UNK
     Route: 030
     Dates: start: 20200227
  9. SANDOSTATIN LAR DEPOT [Suspect]
     Active Substance: OCTREOTIDE ACETATE
     Dosage: UNK
     Route: 065
  10. SERTRALINE [Concomitant]
     Active Substance: SERTRALINE HYDROCHLORIDE
     Indication: DEPRESSION
     Route: 065
  11. GLICLAZIDE [Concomitant]
     Active Substance: GLICLAZIDE
     Indication: TYPE 1 DIABETES MELLITUS
     Dosage: 2 DF, QD
     Route: 048
  12. SANDOSTATIN LAR DEPOT [Suspect]
     Active Substance: OCTREOTIDE ACETATE
     Dosage: 30 MG
     Route: 065
     Dates: start: 200209
  13. SANDOSTATIN LAR DEPOT [Suspect]
     Active Substance: OCTREOTIDE ACETATE
     Dosage: 10 MG
     Route: 065
     Dates: start: 20020901
  14. SANDOSTATIN LAR DEPOT [Suspect]
     Active Substance: OCTREOTIDE ACETATE
     Dosage: 30 MG
     Route: 065
     Dates: start: 2003
  15. SEPURIN [Concomitant]
     Indication: URINARY TRACT DISORDER
     Dosage: UNK
     Route: 065
  16. PARLODEL [Suspect]
     Active Substance: BROMOCRIPTINE MESYLATE
     Indication: PRODUCT USED FOR UNKNOWN INDICATION
     Dosage: UNK
     Route: 065
     Dates: start: 1993
  17. PURAN [Concomitant]
     Active Substance: LEVOTHYROXINE SODIUM
     Indication: PRODUCT USED FOR UNKNOWN INDICATION
     Dosage: UNK
     Route: 065
  18. ALDAZIDE [Concomitant]
     Active Substance: BUTHIAZIDE\SPIRONOLACTONE
     Indication: PRODUCT USED FOR UNKNOWN INDICATION
     Route: 065
  19. SANDOSTATIN LAR DEPOT [Suspect]
     Active Substance: OCTREOTIDE ACETATE
     Dosage: 20 MG
     Route: 065
     Dates: start: 2003
  20. CYCLOBENZAPRINE HCL [Concomitant]
     Active Substance: CYCLOBENZAPRINE HYDROCHLORIDE
     Indication: PRODUCT USED FOR UNKNOWN INDICATION
     Dosage: UNK
     Route: 065
  21. CYCLOBENZAPRIN HYDROCHLORIDE [Concomitant]
     Active Substance: CYCLOBENZAPRINE HYDROCHLORIDE
     Indication: MYALGIA
     Dosage: 100 MG, BID (12 YRS AGO)
     Route: 048
  22. AZUKON [Concomitant]
     Active Substance: GLICLAZIDE
     Indication: DIABETES MELLITUS
     Dosage: UNK UNK, BID (15 YRS AGO)
     Route: 048
  23. SANDOSTATIN LAR DEPOT [Suspect]
     Active Substance: OCTREOTIDE ACETATE
     Dosage: 30 MG
     Route: 065
     Dates: start: 200209
  24. SANDOSTATIN LAR DEPOT [Suspect]
     Active Substance: OCTREOTIDE ACETATE
     Dosage: 30 MG, UNK
     Route: 065
  25. FLUOXETINE [Concomitant]
     Active Substance: FLUOXETINE HYDROCHLORIDE
     Indication: DEPRESSION
     Dosage: UNK
     Route: 065

REACTIONS (87)
  - Asthenia [Unknown]
  - Tumour pain [Recovered/Resolved]
  - Arrhythmia [Unknown]
  - Pancreatic enlargement [Unknown]
  - Panic reaction [Unknown]
  - Deformity [Unknown]
  - Vomiting [Recovered/Resolved]
  - Product storage error [Unknown]
  - Feeling abnormal [Unknown]
  - Pruritus [Unknown]
  - Neoplasm [Recovered/Resolved]
  - Syncope [Recovered/Resolved]
  - Metastases to bone [Unknown]
  - Visual impairment [Not Recovered/Not Resolved]
  - Bone marrow infiltration [Recovering/Resolving]
  - Feeding disorder [Unknown]
  - Stress [Unknown]
  - Skin hypertrophy [Unknown]
  - Crying [Unknown]
  - Mood altered [Unknown]
  - Oropharyngeal pain [Unknown]
  - Product quality issue [Unknown]
  - Gait disturbance [Recovered/Resolved]
  - Anxiety [Recovered/Resolved]
  - Product physical issue [Unknown]
  - Apathy [Not Recovered/Not Resolved]
  - Swelling [Not Recovered/Not Resolved]
  - Acromegaly [Unknown]
  - Cataract [Not Recovered/Not Resolved]
  - Bone pain [Unknown]
  - Cardiomegaly [Recovering/Resolving]
  - Malaise [Not Recovered/Not Resolved]
  - Lung disorder [Unknown]
  - Fear [Recovering/Resolving]
  - Needle issue [Unknown]
  - Skin discolouration [Recovered/Resolved]
  - Neuralgia [Unknown]
  - Gait disturbance [Recovered/Resolved]
  - Pain [Recovered/Resolved]
  - Asphyxia [Unknown]
  - Eye disorder [Not Recovered/Not Resolved]
  - Metastasis [Recovered/Resolved]
  - Nervousness [Not Recovered/Not Resolved]
  - Agitation [Recovered/Resolved]
  - Balance disorder [Unknown]
  - Fall [Recovered/Resolved]
  - Productive cough [Recovered/Resolved]
  - Suicide attempt [Unknown]
  - Neoplasm malignant [Unknown]
  - Renal impairment [Unknown]
  - Cardiac arrest [Unknown]
  - Pneumonia [Recovered/Resolved]
  - Disease recurrence [Unknown]
  - Fatigue [Unknown]
  - General physical condition abnormal [Unknown]
  - Dyspnoea [Recovered/Resolved]
  - Headache [Recovered/Resolved]
  - Platelet count decreased [Unknown]
  - Cardiac valve disease [Not Recovered/Not Resolved]
  - Yellow skin [Recovered/Resolved]
  - Haemangioma of bone [Recovering/Resolving]
  - Mass [Unknown]
  - Bone disorder [Unknown]
  - Skin discolouration [Unknown]
  - Dyskinesia [Unknown]
  - Dysphonia [Not Recovered/Not Resolved]
  - Suicidal ideation [Unknown]
  - Metastasis [Unknown]
  - Cardiac arrest [Recovered/Resolved]
  - Coronavirus infection [Recovered/Resolved]
  - Diabetes mellitus [Recovering/Resolving]
  - Back pain [Unknown]
  - Insomnia [Unknown]
  - Endocrine disorder [Not Recovered/Not Resolved]
  - Injection site pain [Unknown]
  - Influenza like illness [Recovered/Resolved]
  - Laziness [Not Recovered/Not Resolved]
  - Pyrexia [Unknown]
  - Malaise [Recovered/Resolved]
  - Decreased immune responsiveness [Recovered/Resolved]
  - Muscular weakness [Unknown]
  - Wound [Unknown]
  - Hepatomegaly [Recovering/Resolving]
  - Foot deformity [Unknown]
  - Incorrect dose administered [Not Recovered/Not Resolved]
  - Inappropriate schedule of product administration [Unknown]
  - Therapeutic product effect delayed [Unknown]

NARRATIVE: CASE EVENT DATE: 1993
